FAERS Safety Report 6180178-2 (Version None)
Quarter: 2009Q2

REPORT INFORMATION
  Report Type: 
  Country: None (occurrence: None)
  Receive Date: 20090501
  Receipt Date: 20090416
  Transmission Date: 20091009
  Serious: Yes (Other)
  Sender: FDA-Public Use
  Company Number: B0571118A

PATIENT
  Age: 30 Year
  Sex: 0

DRUGS (1)
  1. ALBENDAZOLE (FORMULATION UNKNOWN) (GENERIC) (ALBENDAZOLE) [Suspect]
     Indication: HEPATIC ECHINOCOCCIASIS

REACTIONS (4)
  - AUTOIMMUNE HEPATITIS [None]
  - HEPATITIS [None]
  - HEPATOTOXICITY [None]
  - HYPERSENSITIVITY [None]
